FAERS Safety Report 23487330 (Version 1)
Quarter: 2024Q1

REPORT INFORMATION
  Report Type: Spontaneous
  Country: US (occurrence: None)
  Receive Date: 20240205
  Receipt Date: 20240205
  Transmission Date: 20240409
  Serious: Yes (Life-Threatening)
  Sender: FDA-Public Use
  Company Number: None

PATIENT
  Age: 71 Year
  Sex: Female
  Weight: 54 kg

DRUGS (2)
  1. PAXLOVID [Suspect]
     Active Substance: NIRMATRELVIR\RITONAVIR
     Indication: COVID-19
     Dosage: FREQUENCY : TWICE A DAY;?
     Route: 048
     Dates: start: 20240130, end: 20240201
  2. NAPROXEN [Concomitant]
     Active Substance: NAPROXEN
     Dates: start: 20240131, end: 20240202

REACTIONS (1)
  - Angioedema [None]

NARRATIVE: CASE EVENT DATE: 20240202
